FAERS Safety Report 10312190 (Version 2)
Quarter: 2014Q3

REPORT INFORMATION
  Report Type: Spontaneous
  Country: US (occurrence: US)
  Receive Date: 20140718
  Receipt Date: 20140820
  Transmission Date: 20150326
  Serious: No
  Sender: FDA-Public Use
  Company Number: US-009507513-1407USA005837

PATIENT
  Age: 18 Year
  Sex: Female
  Weight: 70.75 kg

DRUGS (1)
  1. NEXPLANON [Suspect]
     Active Substance: ETONOGESTREL
     Indication: CONTRACEPTION
     Dosage: DOSE/FREQUENCY: 68MG/ ONCE EVERY 3 YEARS
     Route: 059
     Dates: start: 20140131

REACTIONS (3)
  - Device breakage [Not Recovered/Not Resolved]
  - Fatigue [Not Recovered/Not Resolved]
  - Menstruation normal [Not Recovered/Not Resolved]

NARRATIVE: CASE EVENT DATE: 20140630
